FAERS Safety Report 4682676-7 (Version None)
Quarter: 2005Q2

REPORT INFORMATION
  Report Type: 
  Country: None (occurrence: None)
  Receive Date: 20050606
  Receipt Date: 20050523
  Transmission Date: 20051028
  Serious: Yes (Hospitalization)
  Sender: FDA-Public Use
  Company Number: PL-GLAXOSMITHKLINE-B0382922A

PATIENT
  Age: 84 Year
  Sex: Female

DRUGS (1)
  1. DIGOXIN [Suspect]
     Indication: DRUG USE FOR UNKNOWN INDICATION
     Route: 065

REACTIONS (13)
  - CARDIAC DISORDER [None]
  - CHEST DISCOMFORT [None]
  - DRY EYE [None]
  - ELECTROCARDIOGRAM ABNORMAL [None]
  - ISCHAEMIC CARDIOMYOPATHY [None]
  - LUNG CREPITATION [None]
  - MUCOSAL DRYNESS [None]
  - NERVOUS SYSTEM DISORDER [None]
  - PYELONEPHRITIS CHRONIC [None]
  - SYNCOPE [None]
  - THERAPEUTIC AGENT TOXICITY [None]
  - VISUAL ACUITY REDUCED [None]
  - VOMITING [None]
